FAERS Safety Report 9833390 (Version 2)
Quarter: 2014Q1

REPORT INFORMATION
  Report Type: Spontaneous
  Country: US (occurrence: US)
  Receive Date: 20140121
  Receipt Date: 20140121
  Transmission Date: 20141002
  Serious: Yes (Hospitalization, Other)
  Sender: FDA-Public Use
  Company Number: US-US-EMD SERONO, INC.-234135K07USA

PATIENT
  Age: 46 Year
  Sex: Male
  Weight: 82 kg

DRUGS (8)
  1. REBIF [Suspect]
     Indication: MULTIPLE SCLEROSIS
     Route: 058
     Dates: start: 20060601
  2. REBIF [Suspect]
     Route: 058
  3. SOLU-MEDROL [Suspect]
     Indication: MULTIPLE SCLEROSIS
     Dates: start: 200606, end: 200612
  4. SOLU-MEDROL [Suspect]
     Dates: start: 200701, end: 200705
  5. SOLU-MEDROL [Suspect]
     Dates: start: 200705
  6. PROVIGIL [Concomitant]
     Indication: FATIGUE
  7. VALIUM [Concomitant]
     Indication: ANXIETY
  8. PEPCID [Concomitant]
     Indication: GASTROOESOPHAGEAL REFLUX DISEASE

REACTIONS (3)
  - Diverticular perforation [Recovered/Resolved]
  - Incision site infection [Recovering/Resolving]
  - Incisional hernia [Recovering/Resolving]
